FAERS Safety Report 8887834 (Version 1)
Quarter: 2013Q1

REPORT INFORMATION
  Report Type: Spontaneous
  Country: US (occurrence: None)
  Receive Date: 20121101
  Receipt Date: 20121101
  Transmission Date: 20140127
  Serious: Yes (Hospitalization)
  Sender: FDA-Public Use
  Company Number: None

PATIENT
  Age: 54 Year
  Sex: Female

DRUGS (5)
  1. GEMCITABINE [Suspect]
     Indication: CHOLANGIOCARCINOMA
     Route: 042
     Dates: start: 20120820, end: 20120826
  2. OXALIPLATIN [Suspect]
     Indication: CHOLANGIOCARCINOMA
     Route: 042
     Dates: start: 20120821, end: 20120826
  3. GEMCITABINE [Suspect]
     Indication: CHOLANGIOCARCINOMA
     Route: 042
     Dates: start: 20120917, end: 20121008
  4. OXALIPLATIN [Suspect]
     Indication: CHOLANGIOCARCINOMA
     Route: 042
     Dates: start: 20120918, end: 20121009
  5. ERLOTINIB [Suspect]
     Route: 048
     Dates: start: 20120822, end: 20120905

REACTIONS (3)
  - Back pain [None]
  - Hypoaesthesia [None]
  - Metastatic pain [None]
